FAERS Safety Report 25277047 (Version 2)
Quarter: 2025Q3

REPORT INFORMATION
  Report Type: Spontaneous
  Country: US (occurrence: US)
  Receive Date: 20250507
  Receipt Date: 20250701
  Transmission Date: 20251020
  Serious: No
  Sender: KARYOPHARM THERAPEUTICS
  Company Number: US-KARYOPHARM-2025KPT100209

PATIENT

DRUGS (9)
  1. SELINEXOR [Suspect]
     Active Substance: SELINEXOR
     Indication: Plasma cell myeloma
     Route: 048
     Dates: start: 20250415
  2. DEXAMETHASONE [Concomitant]
     Active Substance: DEXAMETHASONE
  3. BACTRIM [Concomitant]
     Active Substance: SULFAMETHOXAZOLE\TRIMETHOPRIM
  4. ELIQUIS [Concomitant]
     Active Substance: APIXABAN
  5. ZOFRAN [Concomitant]
     Active Substance: ONDANSETRON HYDROCHLORIDE
  6. SPIRONOLACTONE [Concomitant]
     Active Substance: SPIRONOLACTONE
  7. POMALYST [Concomitant]
     Active Substance: POMALIDOMIDE
  8. PANTOPRAZOLE [Concomitant]
     Active Substance: PANTOPRAZOLE
  9. METOPROLOL TARTRATE [Concomitant]
     Active Substance: METOPROLOL TARTRATE

REACTIONS (2)
  - Insomnia [Unknown]
  - Constipation [Unknown]

NARRATIVE: CASE EVENT DATE: 20250101
